FAERS Safety Report 6811362-X (Version None)
Quarter: 2010Q2

REPORT INFORMATION
  Report Type: 
  Country: None (occurrence: None)
  Receive Date: 20100630
  Receipt Date: 20100125
  Transmission Date: 20101027
  Serious: No
  Sender: FDA-Public Use
  Company Number: US-AMGEN-KDL382803

PATIENT
  Sex: Male
  Weight: 113.5 kg

DRUGS (13)
  1. PROCRIT [Suspect]
     Indication: MYELODYSPLASTIC SYNDROME
     Dates: start: 20081001
  2. LANTUS [Concomitant]
  3. CRESTOR [Concomitant]
  4. FLUTAMIDE [Concomitant]
  5. ZOLADEX [Concomitant]
  6. LISINOPRIL [Concomitant]
  7. ACTOS [Concomitant]
  8. TYLENOL [Concomitant]
  9. VITAMIN D [Concomitant]
  10. NOVOLOG [Concomitant]
  11. MULTIPLE VITAMINS [Concomitant]
  12. CALCIUM CARBONATE [Concomitant]
  13. CHONDROITIN [Concomitant]

REACTIONS (1)
  - INCORRECT ROUTE OF DRUG ADMINISTRATION [None]
